FAERS Safety Report 17272147 (Version 5)
Quarter: 2020Q4

REPORT INFORMATION
  Report Type: Spontaneous
  Country: JP (occurrence: JP)
  Receive Date: 20200115
  Receipt Date: 20201216
  Transmission Date: 20210113
  Serious: Yes (Hospitalization, Disabling, Other)
  Sender: FDA-Public Use
  Company Number: JP-ASTRAZENECA-2020SE05340

PATIENT
  Age: 21520 Day
  Sex: Female
  Weight: 42 kg

DRUGS (14)
  1. TAGRISSO [Suspect]
     Active Substance: OSIMERTINIB
     Indication: NON-SMALL CELL LUNG CANCER
     Route: 048
     Dates: start: 20190830, end: 20191222
  2. TAGRISSO [Suspect]
     Active Substance: OSIMERTINIB
     Indication: NON-SMALL CELL LUNG CANCER
     Route: 048
     Dates: start: 20190516, end: 20190710
  3. ZOLPIDEM TARTRATE. [Concomitant]
     Active Substance: ZOLPIDEM TARTRATE
     Indication: INSOMNIA
     Route: 048
     Dates: start: 20191220
  4. SULBACILLIN [Concomitant]
     Active Substance: AMPICILLIN SODIUM\SULBACTAM SODIUM
     Indication: PNEUMONIA
     Route: 041
     Dates: start: 20190711, end: 20190717
  5. LOXOPROFEN [Concomitant]
     Active Substance: LOXOPROFEN
     Indication: HEADACHE
     Route: 048
     Dates: start: 20190420
  6. SENNOSIDE [Concomitant]
     Active Substance: SENNOSIDES
     Indication: CONSTIPATION
     Route: 048
  7. PREDNISOLONE. [Concomitant]
     Active Substance: PREDNISOLONE
     Dosage: 40.0MG UNKNOWN
     Dates: start: 20190717
  8. PREDNISOLONE. [Concomitant]
     Active Substance: PREDNISOLONE
     Dosage: 40.0MG UNKNOWN
     Dates: start: 20191227
  9. CLARITH [Concomitant]
     Active Substance: CLARITHROMYCIN
     Indication: BRONCHITIS CHRONIC
     Route: 048
     Dates: start: 20191111
  10. AZM (AZITHROMYCIN) [Concomitant]
  11. PREDNISOLONE. [Concomitant]
     Active Substance: PREDNISOLONE
     Dosage: 30.0MG UNKNOWN
     Dates: start: 20190730
  12. LORAZEPAM. [Concomitant]
     Active Substance: LORAZEPAM
     Route: 048
     Dates: start: 201912
  13. L-CARBOCISTEINE [Concomitant]
     Active Substance: CARBOCYSTEINE
     Indication: BRONCHITIS CHRONIC
     Route: 048
     Dates: start: 20191209
  14. ABPC (AMPICILLIN)/SBT (SULBACTAM) [Concomitant]

REACTIONS (9)
  - Cardiomyopathy [Recovering/Resolving]
  - Hand fracture [Not Recovered/Not Resolved]
  - Ejection fraction decreased [Recovering/Resolving]
  - Lung abscess [Unknown]
  - Interstitial lung disease [Recovered/Resolved]
  - Dry skin [Recovered/Resolved]
  - Pulmonary infarction [Recovering/Resolving]
  - Paronychia [Recovering/Resolving]
  - Rash [Recovering/Resolving]

NARRATIVE: CASE EVENT DATE: 20190524
